FAERS Safety Report 14544363 (Version 1)
Quarter: 2018Q1

REPORT INFORMATION
  Report Type: Spontaneous
  Country: US (occurrence: US)
  Receive Date: 20180215
  Receipt Date: 20180215
  Transmission Date: 20180509
  Serious: No
  Sender: FDA-Public Use
  Company Number: None

PATIENT
  Sex: Female

DRUGS (1)
  1. FORTEO [Suspect]
     Active Substance: TERIPARATIDE
     Route: 058
     Dates: start: 201801

REACTIONS (6)
  - Headache [None]
  - Fatigue [None]
  - Mobility decreased [None]
  - Disturbance in attention [None]
  - Memory impairment [None]
  - Dizziness [None]
